FAERS Safety Report 5011886-4 (Version None)
Quarter: 2006Q2

REPORT INFORMATION
  Report Type: 
  Country: None (occurrence: None)
  Receive Date: 20060524
  Receipt Date: 20060524
  Transmission Date: 20061013
  Serious: No
  Sender: FDA-Public Use
  Company Number: None

PATIENT
  Age: 63 Year
  Sex: Male
  Weight: 73.4 kg

DRUGS (1)
  1. TEQUIN [Suspect]
     Indication: INFECTION
     Dosage: 400 MG  Q DAILY  PO
     Route: 048
     Dates: start: 20060120, end: 20060203

REACTIONS (3)
  - BLOOD GLUCOSE FLUCTUATION [None]
  - DIABETES MELLITUS INADEQUATE CONTROL [None]
  - INADEQUATE DIET [None]
